FAERS Safety Report 19309189 (Version 2)
Quarter: 2021Q3

REPORT INFORMATION
  Report Type: Other
  Country: CA (occurrence: CA)
  Receive Date: 20210526
  Receipt Date: 20210719
  Transmission Date: 20211014
  Serious: Yes (Other)
  Sender: FDA-Public Use
  Company Number: CA-ROCHE-2344974

PATIENT
  Age: 33 Year
  Sex: Female

DRUGS (36)
  1. MELATONIN [Concomitant]
     Active Substance: MELATONIN
  2. TURMERIC [Concomitant]
     Active Substance: HERBALS\TURMERIC
  3. BOTOX [Concomitant]
     Active Substance: ONABOTULINUMTOXINA
     Indication: HEADACHE
  4. CANNABIDIOL [Concomitant]
     Active Substance: CANNABIDIOL
     Indication: MUSCLE TIGHTNESS
  5. THERACURMIN [Concomitant]
     Active Substance: CURCUMIN\DIETARY SUPPLEMENT
  6. GLUTEN [Concomitant]
     Active Substance: WHEAT GLUTEN
  7. MIRENA [Concomitant]
     Active Substance: LEVONORGESTREL
  8. GABAPENTIN. [Concomitant]
     Active Substance: GABAPENTIN
  9. OMEGA 3 [Concomitant]
     Active Substance: OMEGA-3 FATTY ACIDS
  10. TYLENOL [Concomitant]
     Active Substance: ACETAMINOPHEN
     Indication: PREMEDICATION
     Route: 048
     Dates: start: 20190620
  11. MAGNESIUM [Concomitant]
     Active Substance: MAGNESIUM
  12. VISANNE [Concomitant]
     Active Substance: DIENOGEST
  13. ZINC. [Concomitant]
     Active Substance: ZINC
  14. ATIVAN [Concomitant]
     Active Substance: LORAZEPAM
  15. BACLOFEN. [Concomitant]
     Active Substance: BACLOFEN
  16. FISH OIL [Concomitant]
     Active Substance: FISH OIL
  17. GINGER. [Concomitant]
     Active Substance: GINGER
  18. POTASSIUM [Concomitant]
     Active Substance: POTASSIUM
  19. SOLU?MEDROL [Concomitant]
     Active Substance: METHYLPREDNISOLONE SODIUM SUCCINATE
     Indication: PREMEDICATION
     Route: 042
     Dates: start: 20190620
  20. ROBAXISAL [Concomitant]
     Active Substance: ASPIRIN\METHOCARBAMOL
     Indication: MUSCLE TIGHTNESS
  21. SAW PALMETTO [Concomitant]
     Active Substance: HERBALS\SAW PALMETTO
  22. AVENTYL [Concomitant]
     Active Substance: NORTRIPTYLINE HYDROCHLORIDE
  23. TYLENOL [Concomitant]
     Active Substance: ACETAMINOPHEN
     Route: 048
     Dates: start: 20190704
  24. GARLIC. [Concomitant]
     Active Substance: GARLIC
  25. MAGNESIUM BISGLYCINATE [Concomitant]
  26. RITUXAN [Suspect]
     Active Substance: RITUXIMAB
     Indication: CENTRAL NERVOUS SYSTEM INFLAMMATION
     Route: 041
     Dates: start: 20190620
  27. BENADRYL [Concomitant]
     Active Substance: DIPHENHYDRAMINE HYDROCHLORIDE
     Indication: PREMEDICATION
     Route: 048
     Dates: start: 20190620
  28. IRON [Concomitant]
     Active Substance: IRON
     Route: 048
  29. BOTOX [Concomitant]
     Active Substance: ONABOTULINUMTOXINA
     Indication: MUSCLE TIGHTNESS
  30. ASEA HCT [Concomitant]
  31. LIDOCAINE. [Concomitant]
     Active Substance: LIDOCAINE
  32. CONCERTA [Concomitant]
     Active Substance: METHYLPHENIDATE HYDROCHLORIDE
  33. LION^S MANE [Concomitant]
  34. VITAMIN B12 [Concomitant]
     Active Substance: CYANOCOBALAMIN
  35. CYCLOBENZAPRINE. [Concomitant]
     Active Substance: CYCLOBENZAPRINE
     Indication: MUSCLE TIGHTNESS
  36. TRAZODONE [Concomitant]
     Active Substance: TRAZODONE HYDROCHLORIDE

REACTIONS (34)
  - Off label use [Unknown]
  - Relapsing multiple sclerosis [Unknown]
  - Nervousness [Unknown]
  - Jaw disorder [Unknown]
  - Feeling abnormal [Unknown]
  - Nausea [Recovered/Resolved]
  - Heart rate increased [Not Recovered/Not Resolved]
  - Hypotension [Unknown]
  - Suspected COVID-19 [Unknown]
  - Autism spectrum disorder [Unknown]
  - Muscle spasms [Unknown]
  - Headache [Recovered/Resolved]
  - Body temperature increased [Unknown]
  - Attention deficit hyperactivity disorder [Unknown]
  - Post viral fatigue syndrome [Unknown]
  - Gait inability [Recovered/Resolved]
  - Anxiety [Unknown]
  - Pain in jaw [Unknown]
  - Infusion related reaction [Recovered/Resolved]
  - Blood pressure diastolic abnormal [Unknown]
  - Rheumatoid arthritis [Not Recovered/Not Resolved]
  - Menstrual disorder [Not Recovered/Not Resolved]
  - Malaise [Unknown]
  - Decreased appetite [Unknown]
  - Influenza like illness [Not Recovered/Not Resolved]
  - Lymphadenopathy [Unknown]
  - Salivary gland pain [Unknown]
  - Facial asymmetry [Unknown]
  - Weight fluctuation [Unknown]
  - Pain [Not Recovered/Not Resolved]
  - Blood pressure diastolic decreased [Unknown]
  - Weight decreased [Recovering/Resolving]
  - Exostosis [Unknown]
  - Intervertebral disc degeneration [Unknown]

NARRATIVE: CASE EVENT DATE: 20190620
